FAERS Safety Report 22323898 (Version 1)
Quarter: 2023Q2

REPORT INFORMATION
  Report Type: Report from Study
  Country: US (occurrence: US)
  Receive Date: 20230516
  Receipt Date: 20230516
  Transmission Date: 20230722
  Serious: Yes (Death, Other)
  Sender: FDA-Public Use
  Company Number: US-MIRATI-MT2023PM03968

PATIENT

DRUGS (1)
  1. KRAZATI [Suspect]
     Active Substance: ADAGRASIB
     Indication: Pancreatic carcinoma
     Dosage: 600 MG, BID
     Route: 048
     Dates: start: 20230202

REACTIONS (1)
  - Death [Fatal]
